FAERS Safety Report 18745804 (Version 1)
Quarter: 2021Q1

REPORT INFORMATION
  Report Type: Spontaneous
  Country: US (occurrence: JP)
  Receive Date: 20210115
  Receipt Date: 20210115
  Transmission Date: 20210419
  Serious: Yes (Life-Threatening, Hospitalization, Other)
  Sender: FDA-Public Use
  Company Number: JP-ASTELLAS-2021JP000394

PATIENT
  Age: 33 Year
  Sex: Male
  Weight: 55 kg

DRUGS (6)
  1. PROGRAF [Suspect]
     Active Substance: TACROLIMUS
     Indication: COLITIS ULCERATIVE
     Route: 048
     Dates: start: 20181010, end: 20181128
  2. XELJANZ [Suspect]
     Active Substance: TOFACITINIB CITRATE
     Route: 048
     Dates: start: 20200424, end: 20200722
  3. XELJANZ [Suspect]
     Active Substance: TOFACITINIB CITRATE
     Indication: COLITIS ULCERATIVE
     Route: 048
     Dates: start: 20200115, end: 20200423
  4. LEUKERIN [Suspect]
     Active Substance: MERCAPTOPURINE
     Indication: COLITIS ULCERATIVE
     Route: 048
     Dates: start: 20170127, end: 20181001
  5. LEUKERIN [Suspect]
     Active Substance: MERCAPTOPURINE
     Route: 048
     Dates: start: 20190213, end: 20191015
  6. IMURAN [Suspect]
     Active Substance: AZATHIOPRINE
     Indication: COLITIS ULCERATIVE
     Route: 048
     Dates: start: 20161122, end: 20170104

REACTIONS (15)
  - Red blood cell count decreased [Not Recovered/Not Resolved]
  - Anaemia macrocytic [Recovering/Resolving]
  - Blood glucose increased [Recovering/Resolving]
  - Platelet count decreased [Not Recovered/Not Resolved]
  - C-reactive protein increased [Recovered/Resolved]
  - Eosinophil percentage increased [Unknown]
  - Blood creatine phosphokinase decreased [Unknown]
  - Haemoglobin decreased [Recovering/Resolving]
  - Blood creatine phosphokinase decreased [Not Recovered/Not Resolved]
  - White blood cell count decreased [Recovered/Resolved]
  - Myelodysplastic syndrome [Not Recovered/Not Resolved]
  - Haematocrit decreased [Not Recovered/Not Resolved]
  - Basophil percentage increased [Recovering/Resolving]
  - Monocyte percentage increased [Unknown]
  - Red blood cell count decreased [Recovering/Resolving]

NARRATIVE: CASE EVENT DATE: 20200115
